FAERS Safety Report 23242933 (Version 4)
Quarter: 2025Q1

REPORT INFORMATION
  Report Type: Spontaneous
  Country: DE (occurrence: DE)
  Receive Date: 20231129
  Receipt Date: 20250106
  Transmission Date: 20250409
  Serious: Yes (Other)
  Sender: CELLTRION
  Company Number: DE-CELLTRION INC.-2023DE022665

PATIENT

DRUGS (5)
  1. INFLIXIMAB [Suspect]
     Active Substance: INFLIXIMAB
     Indication: Product used for unknown indication
     Route: 065
  2. SIMPONI [Suspect]
     Active Substance: GOLIMUMAB
     Indication: Colitis ulcerative
     Route: 065
  3. CORTISONE [Suspect]
     Active Substance: CORTISONE
     Indication: Colitis ulcerative
     Route: 065
  4. CORTISONE [Suspect]
     Active Substance: CORTISONE
     Route: 065
  5. ENTYVIO [Suspect]
     Active Substance: VEDOLIZUMAB
     Indication: Colitis ulcerative
     Route: 042

REACTIONS (8)
  - Colitis ulcerative [Unknown]
  - Depressed mood [Unknown]
  - Rosacea [Unknown]
  - Alopecia [Unknown]
  - Eye inflammation [Unknown]
  - Rash [Unknown]
  - Hypersensitivity [Unknown]
  - Drug ineffective [Unknown]
